FAERS Safety Report 9353984 (Version 1)
Quarter: 2013Q2

REPORT INFORMATION
  Report Type: Spontaneous
  Country: US (occurrence: US)
  Receive Date: 20130618
  Receipt Date: 20130618
  Transmission Date: 20140414
  Serious: Yes (Other)
  Sender: FDA-Public Use
  Company Number: US-ACTAVIS-2013-10450

PATIENT
  Sex: Female

DRUGS (1)
  1. TRIPLE ANTIBIOTIC [Suspect]
     Indication: SCRATCH
     Dosage: UNK
     Route: 061

REACTIONS (3)
  - Hypersensitivity [Recovered/Resolved]
  - Urticaria [Recovered/Resolved]
  - Dyspnoea [Recovered/Resolved]
